FAERS Safety Report 5330163-5 (Version None)
Quarter: 2007Q2

REPORT INFORMATION
  Report Type: 
  Country: None (occurrence: None)
  Receive Date: 20070521
  Receipt Date: 20070508
  Transmission Date: 20071010
  Serious: Yes (Life-Threatening)
  Sender: FDA-Public Use
  Company Number: JP-PURDUE-MAG_2007_0000536

PATIENT
  Age: 50 Year
  Sex: Female

DRUGS (9)
  1. OXYCODONE HCL [Suspect]
     Indication: CANCER PAIN
     Dosage: 10 MG, BID
     Route: 048
     Dates: start: 20050415, end: 20050519
  2. OXYCODONE HCL [Suspect]
     Dosage: 15 MG, BID
     Route: 048
     Dates: start: 20050520, end: 20050529
  3. OXYCODONE HCL [Suspect]
     Dosage: 20 MG, BID
     Route: 048
     Dates: start: 20050530, end: 20050609
  4. OXYCODONE HCL [Suspect]
     Dosage: 40 MG, BID
     Route: 048
     Dates: start: 20050610, end: 20050626
  5. OXYCODONE HCL [Suspect]
     Dosage: 50 MG, BID
     Route: 048
     Dates: start: 20050627, end: 20050708
  6. OXYCODONE HCL [Suspect]
     Dosage: 40 MG, BID
     Route: 048
     Dates: start: 20050712, end: 20050721
  7. LASIX [Concomitant]
     Indication: CERVIX CARCINOMA
     Dosage: 20 MG, DAILY
     Route: 048
     Dates: start: 20050415, end: 20050421
  8. PURSENNID [Concomitant]
     Indication: CONSTIPATION PROPHYLAXIS
     Dosage: 24 MG, DAILY
     Route: 048
     Dates: start: 20050422, end: 20050527
  9. LOPEMIN [Concomitant]
     Indication: DIARRHOEA
     Dosage: 2 MG, DAILY
     Route: 048
     Dates: start: 20050530, end: 20050603

REACTIONS (4)
  - DIARRHOEA [None]
  - INTESTINAL OBSTRUCTION [None]
  - INTESTINAL PERFORATION [None]
  - SOMNOLENCE [None]
